FAERS Safety Report 13925624 (Version 2)
Quarter: 2017Q3

REPORT INFORMATION
  Report Type: Spontaneous
  Country: CA (occurrence: CA)
  Receive Date: 20170831
  Receipt Date: 20170926
  Transmission Date: 20171127
  Serious: Yes (Other)
  Sender: FDA-Public Use
  Company Number: CA-TEVA-800063ACC

PATIENT
  Sex: Female

DRUGS (1)
  1. ACTAVIS AMLODIPINE [Suspect]
     Active Substance: AMLODIPINE MESYLATE
     Indication: BLOOD PRESSURE MEASUREMENT
     Route: 048
     Dates: end: 201708

REACTIONS (2)
  - Choking [Recovering/Resolving]
  - Product solubility abnormal [Unknown]

NARRATIVE: CASE EVENT DATE: 20170820
